FAERS Safety Report 12136266 (Version 1)
Quarter: 2016Q1

REPORT INFORMATION
  Report Type: Spontaneous
  Country: US (occurrence: US)
  Receive Date: 20160302
  Receipt Date: 20160302
  Transmission Date: 20160526
  Serious: Yes (Death, Other)
  Sender: FDA-Public Use
  Company Number: US-CELGENE-USA-2016024739

PATIENT

DRUGS (4)
  1. VIDAZA [Suspect]
     Active Substance: AZACITIDINE
     Indication: MYELODYSPLASTIC SYNDROME
     Dosage: 25-75 MG/M2
     Route: 041
  2. RUXOLITINIB [Suspect]
     Active Substance: RUXOLITINIB
     Indication: MYELOPROLIFERATIVE NEOPLASM
  3. VIDAZA [Suspect]
     Active Substance: AZACITIDINE
     Indication: MYELOPROLIFERATIVE NEOPLASM
  4. RUXOLITINIB [Suspect]
     Active Substance: RUXOLITINIB
     Indication: MYELODYSPLASTIC SYNDROME
     Dosage: 15-20 MG
     Route: 048

REACTIONS (8)
  - Leukocytosis [Unknown]
  - Thrombocytopenia [Unknown]
  - No therapeutic response [Unknown]
  - Pneumonia [Fatal]
  - Anaemia [Unknown]
  - Acute myeloid leukaemia [Fatal]
  - Pneumothorax [Unknown]
  - Sepsis [Fatal]
